FAERS Safety Report 12680613 (Version 1)
Quarter: 2016Q3

REPORT INFORMATION
  Report Type: Spontaneous
  Country: GB (occurrence: GB)
  Receive Date: 20160824
  Receipt Date: 20160824
  Transmission Date: 20161109
  Serious: Yes (Other)
  Sender: FDA-Public Use
  Company Number: GB-PFIZER INC-2016393954

PATIENT
  Age: 32 Year
  Sex: Female
  Weight: 87 kg

DRUGS (6)
  1. NORTRIPTYLINE [Concomitant]
     Active Substance: NORTRIPTYLINE
     Dosage: 10 MG, UNK
     Route: 048
  2. PROPRANOLOL [Concomitant]
     Active Substance: PROPRANOLOL\PROPRANOLOL HYDROCHLORIDE
     Dosage: 80 MG, UNK
     Route: 048
  3. NAPROXEN. [Concomitant]
     Active Substance: NAPROXEN
     Dosage: 500 MG, UNK
     Route: 048
  4. RIZATRIPTAN. [Concomitant]
     Active Substance: RIZATRIPTAN
     Dosage: 10 MG, UNK
     Route: 048
  5. SAYANA PRESS [Suspect]
     Active Substance: MEDROXYPROGESTERONE\MEDROXYPROGESTERONE ACETATE
     Indication: CONTRACEPTION
     Dosage: 104 MG, UNK
     Route: 058
     Dates: start: 20160427, end: 20160727
  6. TOPIRAMATE. [Concomitant]
     Active Substance: TOPIRAMATE
     Dosage: 25 MG, UNK
     Route: 048

REACTIONS (2)
  - Product substitution issue [Unknown]
  - Migraine [Recovering/Resolving]

NARRATIVE: CASE EVENT DATE: 20160428
